FAERS Safety Report 6748751-8 (Version None)
Quarter: 2010Q2

REPORT INFORMATION
  Report Type: 
  Country: None (occurrence: None)
  Receive Date: 20100601
  Receipt Date: 20100518
  Transmission Date: 20101027
  Serious: Yes (Hospitalization, Other)
  Sender: FDA-Public Use
  Company Number: PHHY2010JP31383

PATIENT
  Age: 87 Year
  Sex: Female

DRUGS (5)
  1. RASILEZ [Suspect]
     Route: 048
  2. GASMOTIN [Concomitant]
     Route: 048
  3. ACINON [Concomitant]
     Route: 048
  4. MYSLEE [Concomitant]
     Route: 048
  5. CALONAL [Concomitant]
     Route: 048

REACTIONS (3)
  - ANTINEUTROPHIL CYTOPLASMIC ANTIBODY [None]
  - NEPHRITIS [None]
  - RENAL FAILURE ACUTE [None]
